FAERS Safety Report 8273057-8 (Version None)
Quarter: 2012Q2

REPORT INFORMATION
  Report Type: 
  Country: None (occurrence: None)
  Receive Date: 20120411
  Receipt Date: 20120409
  Transmission Date: 20120825
  Serious: No
  Sender: FDA-Public Use
  Company Number: US-PFIZER INC-2012066586

PATIENT
  Sex: Male
  Weight: 104 kg

DRUGS (6)
  1. BUPROPION [Concomitant]
     Dosage: UNK
  2. LYRICA [Suspect]
     Indication: DIABETIC NEUROPATHY
     Dosage: 100 MG, TWO TO THREE TIMES A DAY
     Route: 048
  3. VALIUM [Concomitant]
     Dosage: 5 MG, UNK
  4. PAXIL [Concomitant]
     Indication: DEPRESSION
     Dosage: UNK
  5. LYRICA [Suspect]
     Indication: NEUROPATHY PERIPHERAL
     Dosage: 100 MG
     Route: 048
     Dates: end: 20120201
  6. LISINOPRIL [Concomitant]
     Indication: HYPERTENSION
     Dosage: UNK

REACTIONS (1)
  - PAIN IN EXTREMITY [None]
